FAERS Safety Report 6149140-X (Version None)
Quarter: 2009Q2

REPORT INFORMATION
  Report Type: 
  Country: None (occurrence: None)
  Receive Date: 20090407
  Receipt Date: 20090326
  Transmission Date: 20091009
  Serious: Yes (Other)
  Sender: FDA-Public Use
  Company Number: POMP-1000220

PATIENT
  Age: 9 Year
  Sex: Female

DRUGS (4)
  1. MYOZYME [Suspect]
     Indication: GLYCOGEN STORAGE DISEASE TYPE II
     Dosage: 20 MG/KG, Q2W, INTRAVENOUS
     Route: 042
     Dates: start: 20080111
  2. PREDNISONE TAB [Concomitant]
  3. BENADRYL [Concomitant]
  4. SOLU-MEDROL [Concomitant]

REACTIONS (8)
  - DRUG HYPERSENSITIVITY [None]
  - DYSGEUSIA [None]
  - EPISTAXIS [None]
  - INFLAMMATION [None]
  - INFUSION RELATED REACTION [None]
  - MIGRAINE [None]
  - RESTLESSNESS [None]
  - SERUM SICKNESS [None]
